FAERS Safety Report 10797662 (Version 2)
Quarter: 2015Q1

REPORT INFORMATION
  Report Type: Spontaneous
  Country: US (occurrence: US)
  Receive Date: 20150216
  Receipt Date: 20150325
  Transmission Date: 20150721
  Serious: Yes (Other)
  Sender: FDA-Public Use
  Company Number: US-PFIZER INC-2015050834

PATIENT
  Age: 64 Year
  Sex: Male

DRUGS (5)
  1. HYALURONIC ACID [Concomitant]
     Active Substance: HYALURONIC ACID
     Dosage: UNK
     Dates: start: 2005
  2. EFFEXOR XR [Suspect]
     Active Substance: VENLAFAXINE HYDROCHLORIDE
     Indication: ANTIDEPRESSANT THERAPY
     Dosage: 30 MG, UNK
     Route: 048
     Dates: start: 2008
  3. EFFEXOR XR [Suspect]
     Active Substance: VENLAFAXINE HYDROCHLORIDE
     Indication: DEPRESSION
  4. MORPHINE SULFATE. [Suspect]
     Active Substance: MORPHINE SULFATE
     Dosage: UNK
  5. NICORETTE [Concomitant]
     Active Substance: NICOTINE
     Dosage: UNK
     Dates: start: 2015

REACTIONS (3)
  - Thyroid disorder [Recovered/Resolved]
  - Cerebrovascular accident [Recovered/Resolved with Sequelae]
  - Blood testosterone decreased [Recovered/Resolved]

NARRATIVE: CASE EVENT DATE: 2009
